FAERS Safety Report 13552665 (Version 1)
Quarter: 2017Q2

REPORT INFORMATION
  Report Type: Spontaneous
  Country: US (occurrence: US)
  Receive Date: 20170517
  Receipt Date: 20170517
  Transmission Date: 20170830
  Serious: No
  Sender: FDA-Public Use
  Company Number: US-009507513-1705USA004843

PATIENT
  Age: 68 Year
  Sex: Male
  Weight: 99.37 kg

DRUGS (8)
  1. AMLODIPINE [Concomitant]
     Active Substance: AMLODIPINE BESYLATE
  2. LANTUS [Concomitant]
     Active Substance: INSULIN GLARGINE
  3. ATORVASTATIN [Concomitant]
     Active Substance: ATORVASTATIN
  4. JANUVIA [Suspect]
     Active Substance: SITAGLIPTIN PHOSPHATE
     Indication: DIABETES MELLITUS INADEQUATE CONTROL
     Dosage: UNK
     Route: 048
     Dates: start: 20160802, end: 20160804
  5. DIPHTHERIA TOXOID (+) PERTUSSIS VACCINE (UNSPECIFIED) (+) TETANUS TOXO [Concomitant]
     Active Substance: DIPHTHERIA AND TETANUS TOXOIDS AND PERTUSSIS VACCINE
  6. ZESTORETIC [Concomitant]
     Active Substance: HYDROCHLOROTHIAZIDE\LISINOPRIL
  7. VIAGRA [Concomitant]
     Active Substance: SILDENAFIL CITRATE
  8. MIRALAX [Concomitant]
     Active Substance: POLYETHYLENE GLYCOL 3350

REACTIONS (2)
  - Pain [Not Recovered/Not Resolved]
  - Arthralgia [Not Recovered/Not Resolved]

NARRATIVE: CASE EVENT DATE: 20160805
